FAERS Safety Report 23831487 (Version 1)
Quarter: 2024Q2

REPORT INFORMATION
  Report Type: Spontaneous
  Country: US (occurrence: None)
  Receive Date: 20240507
  Receipt Date: 20240507
  Transmission Date: 20240715
  Serious: Yes (Life-Threatening, Hospitalization, Other)
  Sender: FDA-Public Use
  Company Number: None

PATIENT
  Age: 75 Year
  Sex: Male

DRUGS (1)
  1. MOMELOTINIB [Suspect]
     Active Substance: MOMELOTINIB
     Indication: Myelofibrosis
     Dates: start: 20240105, end: 20240422

REACTIONS (7)
  - Acute left ventricular failure [None]
  - Dyspnoea [None]
  - Haemoglobin decreased [None]
  - Confusional state [None]
  - Dyspnoea [None]
  - Ejection fraction decreased [None]
  - Therapy interrupted [None]

NARRATIVE: CASE EVENT DATE: 20240419
